FAERS Safety Report 6793161-0 (Version None)
Quarter: 2010Q2

REPORT INFORMATION
  Report Type: 
  Country: None (occurrence: None)
  Receive Date: 20100624
  Receipt Date: 20090708
  Transmission Date: 20101027
  Serious: Yes (Death, Other)
  Sender: FDA-Public Use
  Company Number: US-MYLANLABS-2009S1010816

PATIENT
  Age: 92 Year
  Sex: Female
  Weight: 40.82 kg

DRUGS (8)
  1. CLOZAPINE [Suspect]
     Route: 048
     Dates: start: 20070101
  2. ALBUTEROL [Concomitant]
  3. CARBIDOPA-LEVODOPA [Concomitant]
  4. FAMOTIDINE [Concomitant]
  5. HYOSCYAMINE [Concomitant]
  6. METOPROLOL [Concomitant]
  7. MICONAZOLE [Concomitant]
  8. MIRTAZAPINE [Concomitant]

REACTIONS (2)
  - DEMENTIA ALZHEIMER'S TYPE [None]
  - FAILURE TO THRIVE [None]
